FAERS Safety Report 6805674-3 (Version None)
Quarter: 2010Q2

REPORT INFORMATION
  Report Type: 
  Country: None (occurrence: None)
  Receive Date: 20100628
  Receipt Date: 20080108
  Transmission Date: 20101027
  Serious: No
  Sender: FDA-Public Use
  Company Number: US-PFIZER INC-2007089989

PATIENT
  Age: 40 Year
  Sex: Male
  Weight: 77.11 kg

DRUGS (3)
  1. GEODON [Suspect]
     Indication: BIPOLAR DISORDER
     Route: 048
     Dates: start: 20071101
  2. LAMICTAL [Concomitant]
  3. CYMBALTA [Concomitant]

REACTIONS (4)
  - FATIGUE [None]
  - NIGHTMARE [None]
  - SEDATION [None]
  - SOMNOLENCE [None]
